FAERS Safety Report 4431485-2 (Version None)
Quarter: 2004Q3

REPORT INFORMATION
  Report Type: 
  Country: None (occurrence: None)
  Receive Date: 20040817
  Receipt Date: 20040804
  Transmission Date: 20050211
  Serious: Yes (Hospitalization)
  Sender: FDA-Public Use
  Company Number: 2004054367

PATIENT

DRUGS (1)
  1. ZITHROMAX [Suspect]
     Indication: TRACHOMA
     Dosage: UNKNOWN
     Route: 065
     Dates: start: 20040804

REACTIONS (7)
  - ABDOMINAL PAIN [None]
  - ANXIETY [None]
  - HEADACHE [None]
  - HYPERSENSITIVITY [None]
  - INFLUENZA [None]
  - NAUSEA [None]
  - VOMITING [None]
